FAERS Safety Report 8617747-3 (Version None)
Quarter: 2012Q3

REPORT INFORMATION
  Report Type: 
  Country: None (occurrence: None)
  Receive Date: 20120824
  Receipt Date: 20120111
  Transmission Date: 20120928
  Serious: No
  Sender: FDA-Public Use
  Company Number: US-ASTRAZENECA-2012SE02425

PATIENT
  Age: 64 Year
  Sex: Female

DRUGS (15)
  1. IPRATROPIUM BROMIDE [Concomitant]
     Dosage: 0.02 PERCENT 3 ML, 3 TIMES A DAY
     Dates: start: 20100604
  2. MULTI-VITAMIN [Concomitant]
     Dosage: ONCE A DAY
     Route: 048
  3. FLUTICASONE PROPIONATE [Concomitant]
     Route: 045
     Dates: start: 20111110
  4. ALBUTEROL [Concomitant]
     Dosage: 0.083 PERCENT, 3 ML INHALED EVERY 4 HOURS
     Route: 055
     Dates: start: 20111021
  5. ASPIRIN [Concomitant]
     Route: 048
  6. VITAMIN E [Concomitant]
     Route: 048
  7. ALPRAZOLAM [Concomitant]
     Indication: ANXIETY
     Dosage: 0.5 TAB ONCE A DAY
     Route: 048
     Dates: start: 20110812
  8. SYMBICORT [Suspect]
     Dosage: 160 MCG/4.5 MCG/INH, 2 PUFFS, TWO TIMES A DAY
     Route: 055
     Dates: start: 20110519
  9. OXYGEN [Concomitant]
     Dosage: 2 LITERS/MIN, AS DIRECTED
     Dates: start: 20101115
  10. VITAMIN D [Concomitant]
     Dates: start: 20110519
  11. PROAIR HFA [Concomitant]
     Indication: WHEEZING
     Dosage: CFC FREE 90 MCG/INH, 2 PUFFS INHALED 4 TIMES A DAY
     Route: 055
     Dates: start: 20110812
  12. PAROXETINE [Concomitant]
     Route: 048
     Dates: start: 20110223
  13. CRESTOR [Suspect]
     Route: 048
     Dates: start: 20110519
  14. ALPRAZOLAM [Concomitant]
     Dosage: 0.5 TAB PRN
     Route: 048
     Dates: start: 20110812
  15. PROAIR HFA [Concomitant]
     Dosage: CFC FREE 90 MCG/INH, 2 PUFFS INHALED PRN
     Route: 055
     Dates: start: 20110812

REACTIONS (2)
  - ANXIETY [None]
  - WHEEZING [None]
